FAERS Safety Report 7368023-0 (Version None)
Quarter: 2011Q1

REPORT INFORMATION
  Report Type: 
  Country: None (occurrence: None)
  Receive Date: 20110323
  Receipt Date: 20110310
  Transmission Date: 20110831
  Serious: Yes (Other)
  Sender: FDA-Public Use
  Company Number: BR-BAYER-2011-021855

PATIENT
  Sex: Female
  Weight: 54 kg

DRUGS (5)
  1. AVELOX [Suspect]
     Indication: SINUSITIS
     Dosage: 400 MG, QD
     Route: 048
     Dates: start: 20100801
  2. LOSARTAN POTASSIUM [Concomitant]
     Indication: HYPERTENSION
     Dosage: 1 DF, QD
     Route: 048
     Dates: start: 20060101
  3. CRESTOR [Concomitant]
     Indication: BLOOD CHOLESTEROL INCREASED
     Dosage: 1 DF, QD
     Route: 048
     Dates: start: 20090101
  4. FRONTAL [Concomitant]
     Indication: ANXIETY
     Dosage: 1 DF, QD
     Route: 048
     Dates: start: 20090101
  5. SINGULAIR [Concomitant]
     Indication: RHINITIS ALLERGIC
     Dosage: 1 DF, QD
     Route: 048
     Dates: start: 20100101

REACTIONS (12)
  - DIARRHOEA [None]
  - NAUSEA [None]
  - FAECES DISCOLOURED [None]
  - WEIGHT DECREASED [None]
  - DEHYDRATION [None]
  - VISUAL FIELD DEFECT [None]
  - GASTROINTESTINAL INFLAMMATION [None]
  - ABDOMINAL DISCOMFORT [None]
  - MICTURITION DISORDER [None]
  - VOMITING [None]
  - VISUAL IMPAIRMENT [None]
  - RASH [None]
